FAERS Safety Report 22524191 (Version 1)
Quarter: 2023Q2

REPORT INFORMATION
  Report Type: Report from Study
  Country: DE (occurrence: DE)
  Receive Date: 20230606
  Receipt Date: 20230606
  Transmission Date: 20230721
  Serious: Yes (Other)
  Sender: FDA-Public Use
  Company Number: DE-TAKEDA-2022TUS013175

PATIENT
  Age: 56 Year
  Sex: Female

DRUGS (6)
  1. VON WILLEBRAND FACTOR HUMAN [Suspect]
     Active Substance: VON WILLEBRAND FACTOR HUMAN
     Indication: Von Willebrand^s disease
     Dosage: 3900 INTERNATIONAL UNIT, 2/WEEK
     Route: 042
     Dates: start: 20201201
  2. VON WILLEBRAND FACTOR HUMAN [Suspect]
     Active Substance: VON WILLEBRAND FACTOR HUMAN
     Dosage: 3900 INTERNATIONAL UNIT, 2/WEEK
     Route: 042
     Dates: start: 20210315
  3. VON WILLEBRAND FACTOR HUMAN [Suspect]
     Active Substance: VON WILLEBRAND FACTOR HUMAN
     Dosage: 3900 INTERNATIONAL UNIT, 3/WEEK
     Route: 042
     Dates: start: 20220107
  4. VON WILLEBRAND FACTOR HUMAN [Suspect]
     Active Substance: VON WILLEBRAND FACTOR HUMAN
     Dosage: 3000 INTERNATIONAL UNIT, 3/WEEK
     Route: 042
  5. VON WILLEBRAND FACTOR HUMAN [Suspect]
     Active Substance: VON WILLEBRAND FACTOR HUMAN
     Dosage: 3900 INTERNATIONAL UNIT, 3/WEEK
     Route: 042
  6. VON WILLEBRAND FACTOR HUMAN [Suspect]
     Active Substance: VON WILLEBRAND FACTOR HUMAN
     Dosage: 3000 INTERNATIONAL UNIT, 3/WEEK
     Route: 042

REACTIONS (10)
  - Wound haemorrhage [Recovered/Resolved]
  - Injection site reaction [Recovering/Resolving]
  - Road traffic accident [Recovered/Resolved]
  - Nasopharyngitis [Recovered/Resolved]
  - Pustule [Recovering/Resolving]
  - Herpes zoster [Recovered/Resolved]
  - Fall [Recovering/Resolving]
  - Limb injury [Recovered/Resolved]
  - Peripheral swelling [Recovering/Resolving]
  - Off label use [Recovered/Resolved]

NARRATIVE: CASE EVENT DATE: 20220107
